FAERS Safety Report 6016708-0 (Version None)
Quarter: 2008Q4

REPORT INFORMATION
  Report Type: 
  Country: None (occurrence: None)
  Receive Date: 20081222
  Receipt Date: 20081206
  Transmission Date: 20090506
  Serious: No
  Sender: FDA-Public Use
  Company Number: US-B.I. PHARMACEUTICALS,INC./RIDGEFIELD-2008-BP-18369BP

PATIENT
  Age: 46 Year
  Sex: Female

DRUGS (2)
  1. ZANTAC 150 [Suspect]
     Indication: HIATUS HERNIA
     Dosage: 50MG
     Route: 048
     Dates: start: 20081101
  2. ZANTAC 150 [Suspect]
     Indication: ERUCTATION

REACTIONS (6)
  - CHEST DISCOMFORT [None]
  - DYSGEUSIA [None]
  - ERUCTATION [None]
  - MEDICATION ERROR [None]
  - SALIVARY HYPERSECRETION [None]
  - VOMITING [None]
